FAERS Safety Report 5976638-7 (Version None)
Quarter: 2008Q4

REPORT INFORMATION
  Report Type: 
  Country: None (occurrence: None)
  Receive Date: 20081202
  Receipt Date: 20081202
  Transmission Date: 20090506
  Serious: Yes (Life-Threatening)
  Sender: FDA-Public Use
  Company Number: None

PATIENT
  Age: 33 Year
  Sex: Female
  Weight: 99.7913 kg

DRUGS (1)
  1. THIOTHIXENE [Suspect]
     Indication: BLOOD PRESSURE
     Dosage: 1 TAB ONCE PO
     Route: 048
     Dates: start: 20081121, end: 20081122

REACTIONS (3)
  - DRUG DISPENSING ERROR [None]
  - MEDICATION ERROR [None]
  - WRONG DRUG ADMINISTERED [None]
